FAERS Safety Report 8830897 (Version 2)
Quarter: 2013Q1

REPORT INFORMATION
  Report Type: Spontaneous
  Country: US (occurrence: US)
  Receive Date: 20121009
  Receipt Date: 20130107
  Transmission Date: 20140127
  Serious: No
  Sender: FDA-Public Use
  Company Number: US-TEVA-362851USA

PATIENT
  Age: 50 Year
  Sex: Female

DRUGS (2)
  1. COPAXONE [Suspect]
  2. AMPYRA [Suspect]
     Dosage: 20 MILLIGRAM DAILY;
     Dates: start: 201103

REACTIONS (2)
  - Muscular weakness [Unknown]
  - Drug effect delayed [Unknown]
